FAERS Safety Report 19244966 (Version 3)
Quarter: 2021Q2

REPORT INFORMATION
  Report Type: Report from Study
  Country: US (occurrence: US)
  Receive Date: 20210511
  Receipt Date: 20210608
  Transmission Date: 20210717
  Serious: No
  Sender: FDA-Public Use
  Company Number: US-TEVA-2021-US-1903778

PATIENT
  Sex: Female

DRUGS (3)
  1. TREPROSTINIL MDV TEVA [Suspect]
     Active Substance: TREPROSTINIL
     Dosage: 20 NG/KG/MIN
     Route: 042
     Dates: end: 20210401
  2. TREPROSTINIL MDV TEVA [Suspect]
     Active Substance: TREPROSTINIL
     Indication: PULMONARY ARTERIAL HYPERTENSION
     Dosage: 12NG/KG/MIN
     Route: 065
     Dates: start: 20210401
  3. TREPROSTINIL MDV TEVA [Suspect]
     Active Substance: TREPROSTINIL
     Dosage: 18 NG/KG/MIN
     Route: 042
     Dates: end: 20210401

REACTIONS (4)
  - Productive cough [Unknown]
  - Pain [Unknown]
  - Pain in jaw [Unknown]
  - Epistaxis [Unknown]
